FAERS Safety Report 4525058-0 (Version None)
Quarter: 2004Q4

REPORT INFORMATION
  Report Type: 
  Country: None (occurrence: None)
  Receive Date: 20041116
  Receipt Date: 20040721
  Transmission Date: 20050328
  Serious: No
  Sender: FDA-Public Use
  Company Number: S04-USA-06048-01

PATIENT
  Age: 85 Year
  Sex: Female

DRUGS (5)
  1. NAMENDA [Suspect]
     Indication: DEMENTIA
     Dosage: 10 MG BID PO
     Route: 048
     Dates: start: 20040602, end: 20040609
  2. NAMENDA [Suspect]
     Indication: DEMENTIA
     Dosage: 5 MG QD PO
     Route: 048
     Dates: start: 20040512, end: 20040518
  3. NAMENDA [Suspect]
     Indication: DEMENTIA
     Dosage: 5 MG BID PO
     Route: 048
     Dates: start: 20040519, end: 20040525
  4. NAMENDA [Suspect]
     Indication: DEMENTIA
     Dosage: 5 MG QAM PO
     Route: 048
     Dates: start: 20040526, end: 20040601
  5. NAMENDA [Suspect]
     Indication: DEMENTIA
     Dosage: 10 MG QHS PO
     Route: 048
     Dates: start: 20040526, end: 20040601

REACTIONS (1)
  - URTICARIA [None]
